FAERS Safety Report 9543273 (Version 1)
Quarter: 2013Q3

REPORT INFORMATION
  Report Type: Spontaneous
  Country: US (occurrence: US)
  Receive Date: 20130923
  Receipt Date: 20130923
  Transmission Date: 20140515
  Serious: Yes (Other)
  Sender: FDA-Public Use
  Company Number: US-SANOFI-AVENTIS-2013SA093063

PATIENT
  Age: 41 Year
  Sex: Female
  Weight: 71.7 kg

DRUGS (14)
  1. FABRAZYME [Suspect]
     Indication: FABRY^S DISEASE
     Route: 042
  2. MACROBID [Concomitant]
     Route: 065
  3. ACETAMINOPHEN [Concomitant]
     Route: 065
  4. DIPHENHYDRAMINE [Concomitant]
     Route: 065
  5. NORMAL SALINE [Concomitant]
     Route: 065
  6. EPINEPHRINE [Concomitant]
     Route: 065
  7. SOLUMEDROL [Concomitant]
     Route: 065
  8. FIORICET [Concomitant]
     Route: 065
  9. OXYCONTIN [Concomitant]
     Route: 065
  10. PROZAC [Concomitant]
     Route: 065
  11. SINGULAIR [Concomitant]
     Route: 065
  12. ADDERALL [Concomitant]
     Route: 065
  13. MOBIC [Concomitant]
     Route: 065
  14. TOPAMAX [Concomitant]
     Route: 065

REACTIONS (1)
  - Urinary tract infection [Unknown]
